FAERS Safety Report 9255583 (Version 1)
Quarter: 2013Q2

REPORT INFORMATION
  Report Type: Spontaneous
  Country: US (occurrence: US)
  Receive Date: 20130425
  Receipt Date: 20130425
  Transmission Date: 20140414
  Serious: Yes (Hospitalization)
  Sender: FDA-Public Use
  Company Number: US-GLAXOSMITHKLINE-A1021210A

PATIENT
  Age: 54 Year
  Sex: Female

DRUGS (7)
  1. PAXIL [Suspect]
     Indication: DEPRESSION
  2. EFFEXOR XR [Suspect]
     Indication: DEPRESSION
     Dosage: 225MG PER DAY
     Route: 048
  3. ZOLOFT [Suspect]
     Indication: DEPRESSION
  4. CYMBALTA [Suspect]
     Indication: DEPRESSION
  5. VENLAFAXINE HYDROCHLORIDE [Suspect]
     Indication: DEPRESSION
     Route: 048
  6. UNSPECIFIED MEDICATIONS [Suspect]
     Indication: DEPRESSION
  7. DIAZEPAM [Concomitant]
     Indication: ANXIETY

REACTIONS (5)
  - Ulcer haemorrhage [Recovering/Resolving]
  - Vomiting [Unknown]
  - Blood test abnormal [Recovered/Resolved]
  - Blood potassium decreased [Recovered/Resolved]
  - Drug ineffective [Unknown]
